FAERS Safety Report 4414694-8 (Version None)
Quarter: 2004Q3

REPORT INFORMATION
  Report Type: 
  Country: None (occurrence: None)
  Receive Date: 20040804
  Receipt Date: 20030717
  Transmission Date: 20050211
  Serious: No
  Sender: FDA-Public Use
  Company Number: US-BRISTOL-MYERS SQUIBB COMPANY-12329496

PATIENT
  Age: 53 Year
  Sex: Female
  Weight: 63 kg

DRUGS (3)
  1. EURAX CREAM [Suspect]
     Indication: ECZEMA
     Route: 061
     Dates: start: 20030716, end: 20030717
  2. LEVLITE [Concomitant]
     Route: 048
  3. PREDNISONE [Concomitant]

REACTIONS (1)
  - NAUSEA [None]
